FAERS Safety Report 7942204 (Version 24)
Quarter: 2014Q2

REPORT INFORMATION
  Report Type: Spontaneous
  Country: US (occurrence: US)
  Receive Date: 20110512
  Receipt Date: 20140505
  Transmission Date: 20141212
  Serious: Yes (Other)
  Sender: FDA-Public Use
  Company Number: PHEH2011US00485

PATIENT
  Age: 58 Year
  Sex: Male
  Weight: 87.75 kg

DRUGS (6)
  1. ZOMETA [Suspect]
     Indication: PROSTATE CANCER METASTATIC
     Dosage: 4 MG,
     Route: 042
     Dates: start: 2005, end: 2010
  2. ZOMETA [Suspect]
     Indication: METASTASES TO BONE
  3. ZOMETA [Suspect]
     Indication: PROPHYLAXIS
  4. LUPRON [Concomitant]
  5. CASODEX [Concomitant]
  6. PLENAXIS [Concomitant]

REACTIONS (92)
  - Osteonecrosis of jaw [Unknown]
  - Pain [Unknown]
  - Infection [Unknown]
  - Deformity [Unknown]
  - Anxiety [Unknown]
  - Injury [Unknown]
  - Physical disability [Unknown]
  - Exposed bone in jaw [Unknown]
  - Purulent discharge [Unknown]
  - Periodontitis [Unknown]
  - Hypertension [Unknown]
  - Pneumonia [Unknown]
  - Osteosclerosis [Unknown]
  - Lymphadenopathy mediastinal [Unknown]
  - Pulmonary mass [Unknown]
  - Renal cyst [Unknown]
  - Metastases to spine [Unknown]
  - Metastases to lymph nodes [Unknown]
  - Metastases to lung [Unknown]
  - Pollakiuria [Unknown]
  - Dysuria [Unknown]
  - Spinal cord compression [Unknown]
  - Retroperitoneal lymphadenopathy [Unknown]
  - Lumbar spinal stenosis [Unknown]
  - Osteoarthritis [Unknown]
  - Depression [Unknown]
  - Microcytic anaemia [Unknown]
  - Bladder spasm [Unknown]
  - Benign prostatic hyperplasia [Unknown]
  - Intervertebral disc degeneration [Unknown]
  - Intervertebral disc protrusion [Unknown]
  - Tooth infection [Unknown]
  - Urinary retention [Unknown]
  - Emphysema [Unknown]
  - Diverticulitis [Unknown]
  - Urinary tract infection [Unknown]
  - Renal failure acute [Unknown]
  - Pyelonephritis [Unknown]
  - Cystitis [Unknown]
  - Prostatitis [Unknown]
  - Aortic thrombosis [Unknown]
  - Osteomyelitis [Unknown]
  - Alveolar osteitis [Unknown]
  - Lactose intolerance [Unknown]
  - Colon adenoma [Unknown]
  - Dental caries [Unknown]
  - Large intestine polyp [Unknown]
  - Bladder outlet obstruction [Unknown]
  - Vascular calcification [Unknown]
  - Aortic calcification [Unknown]
  - Aortic arteriosclerosis [Unknown]
  - Arteriosclerosis coronary artery [Unknown]
  - Haematuria [Unknown]
  - Renal disorder [Unknown]
  - Hypoaesthesia [Unknown]
  - Face oedema [Unknown]
  - Atelectasis [Unknown]
  - Tooth loss [Unknown]
  - Erectile dysfunction [Unknown]
  - Oral pain [Unknown]
  - Toothache [Unknown]
  - Colon cancer metastatic [Unknown]
  - Second primary malignancy [Unknown]
  - Prostate cancer metastatic [Unknown]
  - Malignant neoplasm progression [Unknown]
  - Rash pustular [Unknown]
  - Skin ulcer [Unknown]
  - Skin lesion [Unknown]
  - Urethritis [Unknown]
  - Sexual dysfunction [Unknown]
  - Lymphocyte count decreased [Unknown]
  - Abdominal pain [Unknown]
  - Abdominal rigidity [Unknown]
  - Spinal pain [Unknown]
  - Oedema peripheral [Unknown]
  - Arthralgia [Unknown]
  - Sinus bradycardia [Unknown]
  - Bone pain [Unknown]
  - Limb discomfort [Unknown]
  - Musculoskeletal discomfort [Unknown]
  - Diarrhoea [Unknown]
  - Back pain [Unknown]
  - Neck pain [Unknown]
  - Musculoskeletal pain [Unknown]
  - Constipation [Unknown]
  - Pain in extremity [Unknown]
  - Gait disturbance [Unknown]
  - Hot flush [Unknown]
  - Decreased appetite [Unknown]
  - Weight decreased [Unknown]
  - Rash [Unknown]
  - Muscle spasms [Unknown]
